FAERS Safety Report 8884949 (Version 1)
Quarter: 2012Q4

REPORT INFORMATION
  Report Type: 
  Country: ES (occurrence: ES)
  Receive Date: 20121105
  Receipt Date: 20121105
  Transmission Date: 20130627
  Serious: Yes (Hospitalization, Other)
  Sender: FDA-Public Use
  Company Number: ES-MERCK-1210ESP012749

PATIENT
  Age: 51 Year
  Sex: Female

DRUGS (15)
  1. PEGINTRON [Suspect]
     Indication: HEPATITIS C
     Dosage: 50 Microgram, qw
     Dates: start: 20111222, end: 20120619
  2. RIBAVIRIN [Suspect]
     Indication: HEPATITIS C
     Dosage: 200 mg, qd
     Route: 048
     Dates: start: 20111222, end: 20120619
  3. DACORTIN [Concomitant]
     Indication: LIVER TRANSPLANT
     Dosage: 5 mg/2days
     Route: 048
  4. LEXATIN [Concomitant]
     Indication: ANXIETY
     Dosage: 1.5 mg, qd
     Route: 048
  5. LOPID [Concomitant]
     Indication: DYSLIPIDAEMIA
     Dosage: 900 mg, qd
     Route: 048
     Dates: end: 20120619
  6. NEORAL SANDIMMUN [Concomitant]
     Indication: LIVER TRANSPLANT
     Dosage: UNK, bid
     Route: 048
  7. ZANTAC [Concomitant]
  8. IDEOS [Concomitant]
  9. ADIRO [Concomitant]
  10. AMLODIPINE [Concomitant]
  11. RESINCALCIO [Concomitant]
  12. BESITRAN [Concomitant]
  13. DIFLUCAN [Concomitant]
  14. CLEXANE (ENOXAPARIN SODIUM) [Concomitant]
  15. INSULIN [Concomitant]

REACTIONS (2)
  - Chorea [Recovered/Resolved]
  - Asthenia [Recovered/Resolved]
